FAERS Safety Report 5369127-4 (Version None)
Quarter: 2007Q2

REPORT INFORMATION
  Report Type: 
  Country: None (occurrence: None)
  Receive Date: 20070625
  Receipt Date: 20070110
  Transmission Date: 20071010
  Serious: No
  Sender: FDA-Public Use
  Company Number: US-ASTRAZENECA-2007UW00576

PATIENT
  Age: 65 Year
  Sex: Male
  Weight: 81.6 kg

DRUGS (6)
  1. CRESTOR [Suspect]
     Indication: HYPERCHOLESTEROLAEMIA
     Route: 048
  2. FLOMAX [Concomitant]
  3. AVODART [Concomitant]
  4. MACROBID [Concomitant]
  5. PYRIDIUM [Concomitant]
  6. IBUPROFEN [Concomitant]

REACTIONS (1)
  - SYMPTOM MASKED [None]
